FAERS Safety Report 19038028 (Version 1)
Quarter: 2021Q1

REPORT INFORMATION
  Report Type: Spontaneous
  Country: GB (occurrence: GB)
  Receive Date: 20210322
  Receipt Date: 20210322
  Transmission Date: 20210420
  Serious: Yes (Other)
  Sender: FDA-Public Use
  Company Number: GB-ACCORD-220194

PATIENT
  Age: 32 Year
  Sex: Male
  Weight: 170 kg

DRUGS (3)
  1. FINASTERIDE. [Suspect]
     Active Substance: FINASTERIDE
     Indication: ANDROGENETIC ALOPECIA
     Dosage: STRENGTH: 1MG
     Route: 048
     Dates: start: 20210125, end: 20210309
  2. SERTRALINE [Concomitant]
     Active Substance: SERTRALINE HYDROCHLORIDE
     Indication: ILL-DEFINED DISORDER
  3. PERINDOPRIL [Concomitant]
     Active Substance: PERINDOPRIL
     Indication: ILL-DEFINED DISORDER

REACTIONS (1)
  - Depression suicidal [Unknown]

NARRATIVE: CASE EVENT DATE: 20210214
